FAERS Safety Report 10685582 (Version 2)
Quarter: 2015Q2

REPORT INFORMATION
  Report Type: Spontaneous
  Country: US (occurrence: US)
  Receive Date: 20141231
  Receipt Date: 20150608
  Transmission Date: 20150821
  Serious: Yes (Other)
  Sender: FDA-Public Use
  Company Number: US-BAYER-2014-191218

PATIENT
  Sex: Female

DRUGS (1)
  1. MIRENA [Suspect]
     Active Substance: LEVONORGESTREL
     Indication: CONTRACEPTION
     Dosage: 20 MCG/24HR, CONT
     Route: 015
     Dates: start: 200611, end: 2011

REACTIONS (7)
  - Emotional distress [None]
  - Device dislocation [None]
  - Pain [None]
  - Injury [None]
  - Device issue [None]
  - Ovarian cyst [None]
  - Genital haemorrhage [None]

NARRATIVE: CASE EVENT DATE: 2011
